FAERS Safety Report 24755949 (Version 1)
Quarter: 2024Q4

REPORT INFORMATION
  Report Type: Spontaneous
  Country: ES (occurrence: ES)
  Receive Date: 20241219
  Receipt Date: 20241219
  Transmission Date: 20250115
  Serious: Yes (Other)
  Sender: PRINSTON PHARMACEUTICAL
  Company Number: ES-PRINSTON PHARMACEUTICAL INC.-2024PRN00448

PATIENT
  Age: 67 Year
  Sex: Female

DRUGS (5)
  1. VORICONAZOLE [Suspect]
     Active Substance: VORICONAZOLE
  2. NIFEDIPINE [Suspect]
     Active Substance: NIFEDIPINE
     Dosage: UNK
  3. MORPHINE [Concomitant]
     Active Substance: MORPHINE
  4. CORTICOSTEROID NOS [Concomitant]
     Active Substance: CORTICOSTEROID NOS
  5. ETHAMBUTOL\ISONIAZID\PYRAZINAMIDE\RIFAMPIN [Concomitant]
     Active Substance: ETHAMBUTOL\ETHAMBUTOL DIHYDROCHLORIDE, DL-\ISONIAZID\PYRAZINAMIDE\RIFAMPIN\RIFAMPIN SODIUM

REACTIONS (2)
  - Neurotoxicity [Unknown]
  - Drug interaction [Unknown]
